FAERS Safety Report 7952634-5 (Version None)
Quarter: 2011Q4

REPORT INFORMATION
  Report Type: 
  Country: None (occurrence: None)
  Receive Date: 20111201
  Receipt Date: 20111111
  Transmission Date: 20120403
  Serious: Yes (Other)
  Sender: FDA-Public Use
  Company Number: US-JNJFOC-20111105997

PATIENT
  Age: 72 Year
  Sex: Female
  Weight: 175 kg

DRUGS (2)
  1. ZYRTEC-D 12 HOUR [Suspect]
     Indication: NASOPHARYNGITIS
     Route: 048
  2. ZYRTEC-D 12 HOUR [Suspect]
     Indication: HYPERSENSITIVITY
     Route: 048

REACTIONS (3)
  - BLOOD GLUCOSE INCREASED [None]
  - DRUG ADMINISTERED TO PATIENT OF INAPPROPRIATE AGE [None]
  - EXPIRED DRUG ADMINISTERED [None]
